FAERS Safety Report 4394655-8 (Version None)
Quarter: 2004Q3

REPORT INFORMATION
  Report Type: 
  Country: None (occurrence: None)
  Receive Date: 20040707
  Receipt Date: 20040623
  Transmission Date: 20050211
  Serious: Yes (Hospitalization)
  Sender: FDA-Public Use
  Company Number: US-JNJFOC-20040203354

PATIENT
  Age: 52 Year
  Sex: Female
  Weight: 64.4108 kg

DRUGS (9)
  1. REMICADE [Suspect]
     Indication: RHEUMATOID ARTHRITIS
     Dosage: 200 MG, 1 IN 1 DAY, INTRAVENOUS
     Route: 042
     Dates: start: 20010508
  2. REMICADE [Suspect]
     Indication: RHEUMATOID ARTHRITIS
     Dosage: 200 MG, 1 IN 1 DAY, INTRAVENOUS
     Route: 042
     Dates: start: 20031230
  3. ARAVA [Concomitant]
  4. PREDNISONE TAB [Concomitant]
  5. FOSAMAX [Concomitant]
  6. CELEBREX [Concomitant]
  7. ZOLOFT [Concomitant]
  8. ZYDONE (VICODIN) [Concomitant]
  9. PREMARIN [Concomitant]

REACTIONS (12)
  - ARTHRALGIA [None]
  - ARTHRITIS INFECTIVE [None]
  - CELLULITIS [None]
  - EATING DISORDER [None]
  - HEART RATE INCREASED [None]
  - INFECTION [None]
  - INFUSION RELATED REACTION [None]
  - JOINT SWELLING [None]
  - OEDEMA PERIPHERAL [None]
  - PAIN IN EXTREMITY [None]
  - RENAL PAIN [None]
  - VOMITING [None]
